FAERS Safety Report 12964736 (Version 1)
Quarter: 2016Q4

REPORT INFORMATION
  Report Type: Spontaneous
  Country: CA (occurrence: CA)
  Receive Date: 20161122
  Receipt Date: 20161122
  Transmission Date: 20170207
  Serious: Yes (Hospitalization)
  Sender: FDA-Public Use
  Company Number: CA-INGENUS PHARMACEUTICALS NJ, LLC-ING201611-000111

PATIENT
  Age: 3 Year
  Sex: Female
  Weight: 14.4 kg

DRUGS (2)
  1. ACETAMINOPHEN. [Suspect]
     Active Substance: ACETAMINOPHEN
  2. CARISOPRODOL, ASPIRIN 90% AND CODEINE PHOSPHATE [Suspect]
     Active Substance: ASPIRIN\CARISOPRODOL\CODEINE PHOSPHATE

REACTIONS (3)
  - Toxicity to various agents [Recovered/Resolved]
  - Apnoea [Recovered/Resolved]
  - Haematemesis [Recovered/Resolved]
